FAERS Safety Report 9601791 (Version 1)
Quarter: 2013Q4

REPORT INFORMATION
  Report Type: Spontaneous
  Country: GB (occurrence: None)
  Receive Date: 20131002
  Receipt Date: 20131002
  Transmission Date: 20140711
  Serious: Yes (Hospitalization)
  Sender: FDA-Public Use
  Company Number: AUR-APL-2013-08059

PATIENT
  Age: 56 Year
  Sex: Female

DRUGS (2)
  1. RISPERIDONE [Suspect]
     Indication: PRODUCT USED FOR UNKNOWN INDICATION
     Route: 048
  2. HALOPERIDOL [Suspect]
     Indication: EXTRAPYRAMIDAL DISORDER
     Dosage: UNKNOWN

REACTIONS (6)
  - Off label use [None]
  - Paranoia [None]
  - Aphagia [None]
  - Treatment noncompliance [None]
  - Hallucination, auditory [None]
  - Refusal of treatment by patient [None]
